FAERS Safety Report 21255088 (Version 1)
Quarter: 2022Q3

REPORT INFORMATION
  Report Type: Spontaneous
  Country: US (occurrence: US)
  Receive Date: 20220825
  Receipt Date: 20220825
  Transmission Date: 20221027
  Serious: No
  Sender: FDA-Public Use
  Company Number: US-MYLANLABS-2022M1087842

PATIENT
  Sex: Male

DRUGS (2)
  1. SEMGLEE (INSULIN GLARGINE-YFGN) [Suspect]
     Active Substance: INSULIN GLARGINE-YFGN
     Indication: Type 1 diabetes mellitus
     Dosage: 65 INTERNATIONAL UNIT, BID
     Route: 058
  2. ADMELOG [Concomitant]
     Active Substance: INSULIN LISPRO
     Indication: Diabetes mellitus
     Dosage: UNK
     Route: 065

REACTIONS (2)
  - Device defective [Unknown]
  - Stress [Unknown]
